FAERS Safety Report 11650168 (Version 1)
Quarter: 2015Q4

REPORT INFORMATION
  Report Type: Spontaneous
  Country: US (occurrence: BR)
  Receive Date: 20151021
  Receipt Date: 20151021
  Transmission Date: 20160304
  Serious: No
  Sender: FDA-Public Use
  Company Number: BR-B.I. PHARMACEUTICALS,INC./RIDGEFIELD-2015-BI-56039BR

PATIENT
  Age: 43 Year
  Sex: Female

DRUGS (6)
  1. LANTUS [Concomitant]
     Active Substance: INSULIN GLARGINE
     Indication: DIABETES MELLITUS
     Dosage: 30 U
     Route: 050
     Dates: start: 2008
  2. TRADJENTA [Suspect]
     Active Substance: LINAGLIPTIN
     Indication: TYPE 1 DIABETES MELLITUS
     Dosage: 5 MG
     Route: 048
     Dates: start: 2013, end: 20151002
  3. LOSARTAN. [Concomitant]
     Active Substance: LOSARTAN
     Indication: ROUTINE HEALTH MAINTENANCE
     Dosage: 50 MG
     Route: 048
     Dates: start: 2008
  4. ROSUVASTATIN [Concomitant]
     Active Substance: ROSUVASTATIN
     Indication: PROPHYLAXIS
     Dosage: 20 MG
     Route: 048
  5. METFORMIN [Concomitant]
     Active Substance: METFORMIN HYDROCHLORIDE
     Indication: DIABETES MELLITUS
     Dosage: 2550 MG
     Route: 048
  6. NOVORAPID [Concomitant]
     Active Substance: INSULIN ASPART
     Indication: DIABETES MELLITUS
     Dosage: ROUTE: INJECTABLE
     Route: 050
     Dates: start: 2008

REACTIONS (7)
  - Pancreatitis [Not Recovered/Not Resolved]
  - Dyskinesia [Recovered/Resolved]
  - Nausea [Not Recovered/Not Resolved]
  - Malaise [Not Recovered/Not Resolved]
  - Lipase increased [Not Recovered/Not Resolved]
  - Drug ineffective [Not Recovered/Not Resolved]
  - Off label use [Not Recovered/Not Resolved]

NARRATIVE: CASE EVENT DATE: 2013
